FAERS Safety Report 4980928-4 (Version None)
Quarter: 2006Q2

REPORT INFORMATION
  Report Type: 
  Country: None (occurrence: None)
  Receive Date: 20060424
  Receipt Date: 20050930
  Transmission Date: 20061013
  Serious: Yes (Hospitalization, Disabling)
  Sender: FDA-Public Use
  Company Number: US-MERCK-0510USA01990

PATIENT
  Age: 59 Year
  Sex: Male
  Weight: 85 kg

DRUGS (5)
  1. VIOXX [Suspect]
     Indication: PAIN
     Route: 048
     Dates: start: 20000601, end: 20020401
  2. ASPIRIN [Concomitant]
     Route: 065
  3. ALEVE [Concomitant]
     Route: 065
     Dates: end: 20000601
  4. TYLENOL (CAPLET) [Concomitant]
     Route: 065
  5. STANBACK [Concomitant]
     Route: 065

REACTIONS (2)
  - CEREBROVASCULAR ACCIDENT [None]
  - EMOTIONAL DISORDER [None]
